FAERS Safety Report 7968843-5 (Version None)
Quarter: 2011Q4

REPORT INFORMATION
  Report Type: 
  Country: None (occurrence: None)
  Receive Date: 20111209
  Receipt Date: 20111128
  Transmission Date: 20120403
  Serious: Yes (Hospitalization)
  Sender: FDA-Public Use
  Company Number: PHHY2011FR104615

PATIENT
  Age: 81 Year
  Sex: Male

DRUGS (7)
  1. IRBESARTAN AND HYDROCHLOROTHIAZIDE [Concomitant]
     Dosage: 300/12.5 MG
  2. DIAMICRON [Concomitant]
     Dosage: 30 MG, UNK
  3. PREVISCAN [Concomitant]
     Dosage: 20 MG, UNK
  4. ALLOPURINOL [Concomitant]
  5. LYRICA [Concomitant]
  6. TEGRETOL [Suspect]
     Indication: NEURALGIA
     Dosage: 2 DF, DAILY
     Route: 048
     Dates: start: 20110922, end: 20110930
  7. TRAMADOL HCL [Suspect]
     Indication: NEURALGIA
     Dates: start: 20110401

REACTIONS (11)
  - RASH MACULO-PAPULAR [None]
  - WHITE BLOOD CELL COUNT INCREASED [None]
  - TOXIC SKIN ERUPTION [None]
  - CONJUNCTIVITIS [None]
  - RENAL IMPAIRMENT [None]
  - PYREXIA [None]
  - OEDEMA PERIPHERAL [None]
  - NEUTROPHIL COUNT INCREASED [None]
  - EYELID OEDEMA [None]
  - RASH [None]
  - LIP OEDEMA [None]
